FAERS Safety Report 6035098-0 (Version None)
Quarter: 2009Q1

REPORT INFORMATION
  Report Type: 
  Country: None (occurrence: None)
  Receive Date: 20090112
  Receipt Date: 20090105
  Transmission Date: 20090719
  Serious: Yes (Hospitalization, Other)
  Sender: FDA-Public Use
  Company Number: US-ROXANE LABORATORIES, INC.-2009-RO-00014RO

PATIENT
  Age: 48 Year
  Sex: Male

DRUGS (11)
  1. PREDNISONE TAB [Suspect]
     Indication: IMMUNOSUPPRESSANT DRUG THERAPY
  2. PREDNISONE TAB [Suspect]
     Dosage: 10MG
  3. MYCOPHENOLATE MOFETIL [Suspect]
     Indication: IMMUNOSUPPRESSANT DRUG THERAPY
  4. CLARITHROMYCIN [Suspect]
     Indication: EVIDENCE BASED TREATMENT
  5. CLARITHROMYCIN [Suspect]
     Dosage: 10MG
  6. TACROLIMUS [Suspect]
     Indication: IMMUNOSUPPRESSANT DRUG THERAPY
  7. RIFABUTIN [Suspect]
     Indication: EVIDENCE BASED TREATMENT
  8. MOXIFLOXACIN HCL [Suspect]
     Indication: EVIDENCE BASED TREATMENT
  9. BISPHOSPHONATES [Suspect]
     Indication: BLOOD CALCIUM INCREASED
  10. AMIKACIN [Suspect]
  11. AZITHROMYCIN [Suspect]

REACTIONS (4)
  - HYPERCALCAEMIA [None]
  - IMMUNE RECONSTITUTION SYNDROME [None]
  - MYCOBACTERIAL INFECTION [None]
  - TRANSPLANT REJECTION [None]
